FAERS Safety Report 7829501-0 (Version None)
Quarter: 2011Q4

REPORT INFORMATION
  Report Type: 
  Country: None (occurrence: None)
  Receive Date: 20111020
  Receipt Date: 20111007
  Transmission Date: 20120403
  Serious: Yes (Hospitalization, Other)
  Sender: FDA-Public Use
  Company Number: US-ROCHE-790160

PATIENT
  Sex: Male
  Weight: 87.168 kg

DRUGS (1)
  1. ACCUTANE [Suspect]
     Indication: ACNE CYSTIC
     Route: 048
     Dates: start: 20080701, end: 20081224

REACTIONS (6)
  - CROHN'S DISEASE [None]
  - DEPRESSION [None]
  - BACK PAIN [None]
  - ABDOMINAL ABSCESS [None]
  - COLONIC FISTULA [None]
  - DRY SKIN [None]
